FAERS Safety Report 9610393 (Version 2)
Quarter: 2013Q4

REPORT INFORMATION
  Report Type: Spontaneous
  Country: US (occurrence: US)
  Receive Date: 20131009
  Receipt Date: 20131009
  Transmission Date: 20140711
  Serious: No
  Sender: FDA-Public Use
  Company Number: US-PURDUE-USA-2012-0095450

PATIENT
  Age: 53 Year
  Sex: Female

DRUGS (2)
  1. BUTRANS [Suspect]
     Indication: BACK PAIN
     Dosage: 10 MCG/HR, WEEKLY
     Route: 062
     Dates: start: 201210
  2. BUTRANS [Suspect]
     Dosage: 20 MCG/HR, WEEKLY
     Route: 062

REACTIONS (9)
  - Application site scab [Recovered/Resolved]
  - Application site scar [Not Recovered/Not Resolved]
  - Application site burn [Recovered/Resolved]
  - Application site erythema [Not Recovered/Not Resolved]
  - Application site pruritus [Recovered/Resolved]
  - Pruritus generalised [Recovered/Resolved]
  - Application site pain [Not Recovered/Not Resolved]
  - Application site irritation [Recovered/Resolved]
  - Product adhesion issue [Recovered/Resolved]
